FAERS Safety Report 8955171 (Version 1)
Quarter: 2012Q4

REPORT INFORMATION
  Report Type: 
  Country: US (occurrence: US)
  Receive Date: 20121210
  Receipt Date: 20121210
  Transmission Date: 20130627
  Serious: Yes (Hospitalization)
  Sender: FDA-Public Use
  Company Number: US-BIOGENIDEC-2012BI056995

PATIENT
  Age: 68 Year
  Sex: Female

DRUGS (1)
  1. AVONEX [Suspect]
     Indication: MULTIPLE SCLEROSIS
     Route: 030
     Dates: start: 20040101

REACTIONS (4)
  - Spinal fracture [Recovered/Resolved]
  - Foot fracture [Recovered/Resolved]
  - Limb crushing injury [Recovered/Resolved]
  - Paraesthesia [Not Recovered/Not Resolved]
